FAERS Safety Report 7304205-1 (Version None)
Quarter: 2011Q1

REPORT INFORMATION
  Report Type: 
  Country: None (occurrence: None)
  Receive Date: 20110221
  Receipt Date: 20110201
  Transmission Date: 20110831
  Serious: Yes (Hospitalization)
  Sender: FDA-Public Use
  Company Number: US-BAYER-2011-014780

PATIENT
  Sex: Female
  Weight: 91 kg

DRUGS (3)
  1. YAZ [Suspect]
     Indication: ACNE
  2. YAZ [Suspect]
     Indication: CONTRACEPTION
     Dosage: QD, RECEIVED ONE SAMPLE A MONTH FOR A YEAR AND A HALF FROM HCP
     Dates: start: 20070101, end: 20090101
  3. PROTONIX [Concomitant]
     Indication: GASTRIC PH INCREASED
     Dosage: UNK
     Dates: start: 20070101

REACTIONS (5)
  - CHOLELITHIASIS [None]
  - CHOLECYSTITIS CHRONIC [None]
  - ABDOMINAL PAIN UPPER [None]
  - DIARRHOEA [None]
  - VOMITING [None]
